FAERS Safety Report 16573133 (Version 1)
Quarter: 2019Q3

REPORT INFORMATION
  Report Type: Spontaneous
  Country: DE (occurrence: DE)
  Receive Date: 20190715
  Receipt Date: 20190715
  Transmission Date: 20191004
  Serious: Yes (Hospitalization, Other)
  Sender: FDA-Public Use
  Company Number: DE-TEVA-2019-DE-1076643

PATIENT
  Age: 71 Year
  Sex: Male
  Weight: 80 kg

DRUGS (11)
  1. SPIRONOLACTONE. [Suspect]
     Active Substance: SPIRONOLACTONE
     Dosage: 50 MG, 0.5-0-0-0, TABLETS
     Route: 048
  2. TORASEMIDE [Suspect]
     Active Substance: TORSEMIDE
     Dosage: 5 MG, 2-0-1-0, TABLETS
     Route: 048
  3. ALLOPURINOL. [Concomitant]
     Active Substance: ALLOPURINOL
     Dosage: 100 MG, 0-0-1-0, TABLETS
     Route: 048
  4. ASS ABZ PROTECT 100MG [Concomitant]
     Dosage: 100 MG, 1-0-0-0, TABLETS
     Route: 048
  5. CARVEDILOL. [Concomitant]
     Active Substance: CARVEDILOL
     Dosage: 12.5 MG, 1-0-0-0, TABLETS
     Route: 048
  6. AMLODIPIN [Concomitant]
     Active Substance: AMLODIPINE BESYLATE
     Dosage: 5 MG, 1-0-1-0, TABLETS
     Route: 048
  7. JANUMET [Concomitant]
     Active Substance: METFORMIN HYDROCHLORIDE\SITAGLIPTIN PHOSPHATE
     Dosage: 0.50|1000 MG, 0.5-0-0-0, TABLETS
     Route: 048
  8. LOVASTATIN. [Concomitant]
     Active Substance: LOVASTATIN
     Dosage: 40 MG, 0-0-1.5-0, TABLETS
     Route: 048
  9. CILOSTAZOL. [Concomitant]
     Active Substance: CILOSTAZOL
     Dosage: 100 MG, 1-0-1-0, TABLETS
     Route: 048
  10. CANDESARTAN. [Suspect]
     Active Substance: CANDESARTAN
     Dosage: 16 MG, 1-0-0.5-0, TABLETTEN
     Route: 048
  11. LEVOTHYROXIN-NATRIUM [Concomitant]
     Active Substance: LEVOTHYROXINE SODIUM
     Dosage: 100 MICROGRAM, 1-0-0-0, TABLETS
     Route: 048

REACTIONS (3)
  - Diarrhoea [Unknown]
  - Renal impairment [Unknown]
  - Product prescribing error [Unknown]
